FAERS Safety Report 19922435 (Version 1)
Quarter: 2021Q4

REPORT INFORMATION
  Report Type: Spontaneous
  Country: US (occurrence: US)
  Receive Date: 20211005
  Receipt Date: 20211005
  Transmission Date: 20220304
  Serious: No
  Sender: FDA-Public Use
  Company Number: None

PATIENT
  Sex: Male
  Weight: 86.9 kg

DRUGS (22)
  1. INLYTA [Suspect]
     Active Substance: AXITINIB
     Indication: Renal cancer
     Route: 048
  2. KEYTRUDA [Concomitant]
     Active Substance: PEMBROLIZUMAB
  3. CATHFLO ACTIVASE [Concomitant]
     Active Substance: ALTEPLASE
  4. ASPIRIN [Concomitant]
     Active Substance: ASPIRIN
  5. CLONIDINE [Concomitant]
     Active Substance: CLONIDINE
  6. BREO ELLIPTA [Concomitant]
     Active Substance: FLUTICASONE FUROATE\VILANTEROL TRIFENATATE
  7. FUROSEMIDE [Concomitant]
     Active Substance: FUROSEMIDE
  8. FENOFIBRATE [Concomitant]
     Active Substance: FENOFIBRATE
  9. LEVEMIR [Concomitant]
     Active Substance: INSULIN DETEMIR
  10. INSULIN LISPRO PROTAMINE + LISPRO [Concomitant]
  11. LIDOCAINE\PRILOCAINE [Concomitant]
     Active Substance: LIDOCAINE\PRILOCAINE
  12. LOSARTAN [Concomitant]
     Active Substance: LOSARTAN
  13. METOPROLOL [Concomitant]
     Active Substance: METOPROLOL
  14. MOMETASONE [Concomitant]
     Active Substance: MOMETASONE
  15. ALBUTEROL [Concomitant]
     Active Substance: ALBUTEROL
  16. NIVOLUMAB [Concomitant]
     Active Substance: NIVOLUMAB
  17. OMEPRAZOLE [Concomitant]
     Active Substance: OMEPRAZOLE
  18. PSYLLIUM [Concomitant]
     Active Substance: PLANTAGO SEED
  19. ROPINIROLE [Concomitant]
     Active Substance: ROPINIROLE
  20. ROSUVASTATIN [Concomitant]
     Active Substance: ROSUVASTATIN
  21. SPIRONOLACTONE [Concomitant]
     Active Substance: SPIRONOLACTONE
  22. ALUMINUM HYDROXIDE [Concomitant]
     Active Substance: ALUMINUM HYDROXIDE

REACTIONS (1)
  - Disease progression [None]
